FAERS Safety Report 4756021-2 (Version None)
Quarter: 2005Q3

REPORT INFORMATION
  Report Type: 
  Country: None (occurrence: None)
  Receive Date: 20050825
  Receipt Date: 20050509
  Transmission Date: 20060218
  Serious: Yes (Disabling)
  Sender: FDA-Public Use
  Company Number: WAES 0505USA01100

PATIENT
  Age: 75 Year
  Sex: Female

DRUGS (2)
  1. VYTORIN [Suspect]
     Indication: BLOOD CHOLESTEROL INCREASED
     Dosage: 10-40 MG/DAILY/PO
     Route: 048
     Dates: start: 20050214, end: 20050422
  2. ASPIRIN [Concomitant]

REACTIONS (1)
  - MYALGIA [None]
